FAERS Safety Report 9243271 (Version 1)
Quarter: 2013Q2

REPORT INFORMATION
  Report Type: Spontaneous
  Country: US (occurrence: US)
  Receive Date: 20130419
  Receipt Date: 20130419
  Transmission Date: 20140414
  Serious: Yes (Other)
  Sender: FDA-Public Use
  Company Number: PHHY2013US037345

PATIENT
  Age: 83 Year
  Sex: Male

DRUGS (1)
  1. ASCRIPTIN ENTERIC REG STRENGTH TABLETS [Suspect]

REACTIONS (1)
  - Age-related macular degeneration [Not Recovered/Not Resolved]
